FAERS Safety Report 9160542 (Version 1)
Quarter: 2013Q1

REPORT INFORMATION
  Report Type: Spontaneous
  Country: US (occurrence: US)
  Receive Date: 20130313
  Receipt Date: 20130313
  Transmission Date: 20140127
  Serious: No
  Sender: FDA-Public Use
  Company Number: US-ABBOTT-12P-163-0975696-00

PATIENT
  Age: 53 Year
  Sex: Female

DRUGS (11)
  1. DEPAKOTE [Suspect]
  2. PREVACID [Suspect]
  3. AUGMENTIN [Suspect]
     Indication: PRODUCT USED FOR UNKNOWN INDICATION
  4. CRESTOR [Suspect]
     Indication: PRODUCT USED FOR UNKNOWN INDICATION
  5. DYNABAC [Suspect]
     Indication: PRODUCT USED FOR UNKNOWN INDICATION
  6. SINGULAIR [Suspect]
     Indication: PRODUCT USED FOR UNKNOWN INDICATION
  7. TEQUIN [Suspect]
     Indication: PRODUCT USED FOR UNKNOWN INDICATION
  8. TOPAMAX [Suspect]
     Indication: PRODUCT USED FOR UNKNOWN INDICATION
  9. ZANAFLEX [Suspect]
     Indication: PRODUCT USED FOR UNKNOWN INDICATION
  10. ZYPREXA [Suspect]
     Indication: PRODUCT USED FOR UNKNOWN INDICATION
  11. LIPITOR [Suspect]

REACTIONS (1)
  - Drug hypersensitivity [Not Recovered/Not Resolved]
